FAERS Safety Report 16256339 (Version 2)
Quarter: 2019Q2

REPORT INFORMATION
  Report Type: Report from Study
  Country: US (occurrence: US)
  Receive Date: 20190430
  Receipt Date: 20190621
  Transmission Date: 20190711
  Serious: Yes (Other)
  Sender: FDA-Public Use
  Company Number: US-ROCHE-2307802

PATIENT
  Sex: Female
  Weight: 81.72 kg

DRUGS (4)
  1. OCREVUS [Suspect]
     Active Substance: OCRELIZUMAB
     Indication: PRIMARY PROGRESSIVE MULTIPLE SCLEROSIS
  2. HYDROCODONE [Concomitant]
     Active Substance: HYDROCODONE
     Indication: PAIN
  3. OCREVUS [Suspect]
     Active Substance: OCRELIZUMAB
     Indication: RELAPSING MULTIPLE SCLEROSIS
     Dosage: SUBSEQUENT DOSES ON 15/MAR/2019, 29/MAR/2019
     Route: 065
     Dates: start: 201903
  4. LYRICA [Concomitant]
     Active Substance: PREGABALIN

REACTIONS (4)
  - Arthritis [Unknown]
  - Inflammation [Unknown]
  - Exostosis [Unknown]
  - Musculoskeletal disorder [Unknown]
